FAERS Safety Report 4468131-8 (Version None)
Quarter: 2004Q4

REPORT INFORMATION
  Report Type: 
  Country: None (occurrence: None)
  Receive Date: 20041004
  Receipt Date: 20041004
  Transmission Date: 20050328
  Serious: Yes (Life-Threatening, Hospitalization, Disabling, Other)
  Sender: FDA-Public Use
  Company Number: None

PATIENT
  Age: 35 Year
  Sex: Female
  Weight: 56.6996 kg

DRUGS (3)
  1. VIOXX [Suspect]
     Indication: ARTHRITIS
     Dosage: 25 - 50 MG DAILY ORAL
     Route: 048
     Dates: start: 20010215, end: 20040929
  2. VIOXX [Suspect]
     Indication: INFLAMMATION
     Dosage: 25 - 50 MG DAILY ORAL
     Route: 048
     Dates: start: 20010215, end: 20040929
  3. VIOXX [Suspect]
     Indication: PAIN
     Dosage: 25 - 50 MG DAILY ORAL
     Route: 048
     Dates: start: 20010215, end: 20040929

REACTIONS (4)
  - BLOOD PRESSURE FLUCTUATION [None]
  - CHEST INJURY [None]
  - FALL [None]
  - HEAD INJURY [None]
